FAERS Safety Report 5279602-9 (Version None)
Quarter: 2007Q1

REPORT INFORMATION
  Report Type: 
  Country: None (occurrence: None)
  Receive Date: 20070328
  Receipt Date: 20070316
  Transmission Date: 20070707
  Serious: Yes (Other)
  Sender: FDA-Public Use
  Company Number: CO-PFIZER INC-2007023902

PATIENT
  Sex: Female

DRUGS (1)
  1. CYTOTEC [Suspect]
     Indication: ABORTION
     Route: 048
     Dates: start: 20070305, end: 20070311

REACTIONS (6)
  - ABDOMINAL PAIN UPPER [None]
  - ABORTION MISSED [None]
  - DIARRHOEA [None]
  - NAUSEA [None]
  - VAGINAL HAEMORRHAGE [None]
  - VOMITING [None]
